FAERS Safety Report 6872158-6 (Version None)
Quarter: 2010Q3

REPORT INFORMATION
  Report Type: 
  Country: None (occurrence: None)
  Receive Date: 20100723
  Receipt Date: 20100712
  Transmission Date: 20110219
  Serious: Yes (Other)
  Sender: FDA-Public Use
  Company Number: US-ELI_LILLY_AND_COMPANY-US201007005099

PATIENT
  Age: 50 Year
  Sex: Male

DRUGS (1)
  1. CIALIS [Suspect]
     Indication: ERECTILE DYSFUNCTION

REACTIONS (3)
  - DIABETES MELLITUS [None]
  - DRUG INEFFECTIVE [None]
  - ERECTILE DYSFUNCTION [None]
